FAERS Safety Report 6496682-3 (Version None)
Quarter: 2009Q4

REPORT INFORMATION
  Report Type: 
  Country: None (occurrence: None)
  Receive Date: 20091210
  Receipt Date: 20090525
  Transmission Date: 20100525
  Serious: Yes (Other)
  Sender: FDA-Public Use
  Company Number: 1000010629

PATIENT
  Sex: Female

DRUGS (1)
  1. MEMANTINE HCL [Suspect]
     Dosage: 20 MG (20 MG, 1 IN 1 D)

REACTIONS (3)
  - ACUTE PULMONARY OEDEMA [None]
  - SOMNOLENCE [None]
  - VENTRICULAR FIBRILLATION [None]
